FAERS Safety Report 20960821 (Version 7)
Quarter: 2023Q2

REPORT INFORMATION
  Report Type: Report from Study
  Country: US (occurrence: US)
  Receive Date: 20220615
  Receipt Date: 20230504
  Transmission Date: 20230721
  Serious: Yes (Hospitalization)
  Sender: FDA-Public Use
  Company Number: US-NOVARTISTESTPH-NVSC2022US136781

PATIENT
  Sex: Female
  Weight: 68.49 kg

DRUGS (7)
  1. TREPROSTINIL [Suspect]
     Active Substance: TREPROSTINIL
     Indication: Pulmonary arterial hypertension
     Dosage: 124.5 NG/KG/MIN, CONT
     Route: 042
     Dates: start: 20190624
  2. TREPROSTINIL [Suspect]
     Active Substance: TREPROSTINIL
     Dosage: 124.5 NG/KG/MIN, CONT
     Route: 042
     Dates: start: 20190624
  3. TREPROSTINIL [Suspect]
     Active Substance: TREPROSTINIL
     Dosage: 124.5 NG/KG/MIN, CONT
     Route: 042
     Dates: start: 20190624
  4. TREPROSTINIL [Suspect]
     Active Substance: TREPROSTINIL
     Dosage: 124.5 NG/KG/MIN, CONT
     Route: 042
     Dates: start: 20190624
  5. REMODULIN [Concomitant]
     Active Substance: TREPROSTINIL
     Indication: Product used for unknown indication
     Dosage: UNK
     Route: 065
  6. TRACLEER [Concomitant]
     Active Substance: BOSENTAN
     Indication: Product used for unknown indication
     Dosage: UNK
     Route: 065
  7. REVATIO [Concomitant]
     Active Substance: SILDENAFIL CITRATE
     Indication: Product used for unknown indication
     Dosage: UNK
     Route: 065

REACTIONS (4)
  - COVID-19 [Unknown]
  - Pneumonia [Unknown]
  - Coagulopathy [Unknown]
  - Catheter site haemorrhage [Unknown]
